FAERS Safety Report 23937427 (Version 1)
Quarter: 2024Q2

REPORT INFORMATION
  Report Type: Spontaneous
  Country: US (occurrence: None)
  Receive Date: 20240604
  Receipt Date: 20240604
  Transmission Date: 20240716
  Serious: Yes (Hospitalization)
  Sender: FDA-Public Use
  Company Number: None

PATIENT
  Age: 21 Year
  Sex: Male

DRUGS (11)
  1. MYCOPHENOLATE MOFETIL [Suspect]
     Active Substance: MYCOPHENOLATE MOFETIL
     Indication: Renal transplant
     Dosage: FREQUENCY : TWICE A DAY;?
     Route: 048
     Dates: start: 20141107
  2. TACROLIMUS [Suspect]
     Active Substance: TACROLIMUS
     Indication: Renal transplant
     Dosage: FREQUENCY : TWICE A DAY;?
     Route: 048
     Dates: start: 20141107
  3. CRANBERRY [Concomitant]
     Active Substance: CRANBERRY
  4. TYLENOL [Concomitant]
     Active Substance: ACETAMINOPHEN
  5. CALCITRIOL [Concomitant]
     Active Substance: CALCITRIOL
  6. VITAMIN D [Concomitant]
     Active Substance: VITAMIN D NOS
  7. METHENAMINE HIPPURATE [Concomitant]
     Active Substance: METHENAMINE HIPPURATE
  8. PREDNISONE [Concomitant]
     Active Substance: PREDNISONE
  9. FAMOTIDINE [Concomitant]
     Active Substance: FAMOTIDINE
  10. dertirizine [Concomitant]
  11. AMLODIPINE [Concomitant]
     Active Substance: AMLODIPINE BESYLATE

REACTIONS (1)
  - Kidney infection [None]

NARRATIVE: CASE EVENT DATE: 20240501
